FAERS Safety Report 8841793 (Version 1)
Quarter: 2012Q4

REPORT INFORMATION
  Report Type: 
  Country: SI (occurrence: SI)
  Receive Date: 20121016
  Receipt Date: 20121016
  Transmission Date: 20130627
  Serious: Yes (Life-Threatening, Hospitalization)
  Sender: FDA-Public Use
  Company Number: SI-MILLENNIUM PHARMACEUTICALS, INC.-2012-06937

PATIENT

DRUGS (10)
  1. VELCADE [Suspect]
     Indication: MULTIPLE MYELOMA
     Dosage: 2.4 mg, UNK
     Route: 042
     Dates: start: 20120601, end: 20120601
  2. MEDROL                             /00049601/ [Concomitant]
     Dosage: 112 mg, UNK
     Dates: start: 20120601, end: 20120604
  3. DEXAMETHASONE [Concomitant]
  4. CLEMASTINE [Concomitant]
  5. ALKERAN [Concomitant]
     Dosage: 16 mg, UNK
     Dates: start: 20120601, end: 20120604
  6. GRANISETRON [Concomitant]
     Dosage: UNK
     Dates: start: 20120601, end: 20120601
  7. ALOPURINOL [Concomitant]
     Dosage: 200 mg, UNK
     Dates: start: 20120601, end: 20120603
  8. PANTOPRAZOLE [Concomitant]
     Dosage: 40 mg, UNK
  9. ENAP                               /00574902/ [Concomitant]
     Dosage: 20 mg, UNK
  10. TERTENSIF [Concomitant]
     Dosage: 1.5 mg, UNK

REACTIONS (1)
  - Type III immune complex mediated reaction [Recovered/Resolved]
